FAERS Safety Report 19941761 (Version 1)
Quarter: 2021Q4

REPORT INFORMATION
  Report Type: Spontaneous
  Country: US (occurrence: US)
  Receive Date: 20211007
  Receipt Date: 20211007
  Transmission Date: 20220303
  Serious: No
  Sender: FDA-Public Use
  Company Number: None

PATIENT
  Age: 48 Year
  Sex: Female

DRUGS (1)
  1. STELARA [Suspect]
     Active Substance: USTEKINUMAB
     Indication: Crohn^s disease
     Dosage: ?          OTHER FREQUENCY:EVERY 8 WEEKS ;
     Route: 058
     Dates: start: 202104

REACTIONS (4)
  - Constipation [None]
  - Abdominal distension [None]
  - Weight increased [None]
  - Systemic lupus erythematosus [None]

NARRATIVE: CASE EVENT DATE: 20210701
